FAERS Safety Report 8247462-X (Version None)
Quarter: 2012Q1

REPORT INFORMATION
  Report Type: 
  Country: None (occurrence: None)
  Receive Date: 20120330
  Receipt Date: 20120315
  Transmission Date: 20120608
  Serious: Yes (Death, Hospitalization)
  Sender: FDA-Public Use
  Company Number: ES-CELGENEUS-144-50794-12031922

PATIENT
  Sex: Male

DRUGS (7)
  1. VIDAZA [Suspect]
     Route: 065
     Dates: start: 20101116
  2. VIDAZA [Suspect]
     Dosage: DOSE REDUCED
     Route: 065
  3. VIDAZA [Suspect]
     Route: 065
     Dates: start: 20110411
  4. VIDAZA [Suspect]
     Route: 065
  5. NEUPOGEN [Concomitant]
     Route: 065
  6. VIDAZA [Suspect]
     Dosage: DOSE REDUCED
     Route: 065
  7. DARBEPOETIN ALFA [Concomitant]
     Route: 065

REACTIONS (3)
  - MYELODYSPLASTIC SYNDROME [None]
  - GASTROINTESTINAL TOXICITY [None]
  - NEUTROPENIA [None]
